FAERS Safety Report 6414929-6 (Version None)
Quarter: 2009Q4

REPORT INFORMATION
  Report Type: 
  Country: None (occurrence: None)
  Receive Date: 20091026
  Receipt Date: 20090522
  Transmission Date: 20100525
  Serious: No
  Sender: FDA-Public Use
  Company Number: US-ABBOTT-09P-163-0575596-00

PATIENT
  Sex: Female
  Weight: 86.26 kg

DRUGS (3)
  1. LUPRON DEPOT [Suspect]
     Indication: ENDOMETRIOSIS
     Route: 050
     Dates: start: 20081001
  2. CALCIUM [Concomitant]
     Indication: ASTHENIA
  3. CALCIUM [Concomitant]
     Indication: MINERAL SUPPLEMENTATION

REACTIONS (3)
  - ASTHENIA [None]
  - DRUG DOSE OMISSION [None]
  - HOT FLUSH [None]
